FAERS Safety Report 5460519-1 (Version None)
Quarter: 2007Q3

REPORT INFORMATION
  Report Type: 
  Country: None (occurrence: None)
  Receive Date: 20070919
  Receipt Date: 20070726
  Transmission Date: 20080115
  Serious: No
  Sender: FDA-Public Use
  Company Number: US-ASTRAZENECA-2007UW18117

PATIENT
  Age: 29 Year
  Sex: Male

DRUGS (3)
  1. SEROQUEL [Suspect]
     Indication: BIPOLAR I DISORDER
     Route: 048
  2. LITHIUM [Concomitant]
  3. ZYPREXA [Concomitant]

REACTIONS (2)
  - SOCIAL AVOIDANT BEHAVIOUR [None]
  - SYMPTOM MASKED [None]
